FAERS Safety Report 5794865-9 (Version None)
Quarter: 2008Q2

REPORT INFORMATION
  Report Type: 
  Country: None (occurrence: None)
  Receive Date: 20080630
  Receipt Date: 20080626
  Transmission Date: 20081010
  Serious: Yes (Hospitalization)
  Sender: FDA-Public Use
  Company Number: PHHO2004AU18372

PATIENT
  Sex: Male
  Weight: 73 kg

DRUGS (18)
  1. ACLASTA/ZOLEDRONATE T29581+A+SOLINJ+OS [Suspect]
     Indication: OSTEOPOROSIS
     Dosage: 5MG
     Dates: start: 20040913, end: 20041103
  2. REMICADE [Suspect]
     Indication: RHEUMATOID ARTHRITIS
     Dosage: 300 MG, QMO
     Route: 042
     Dates: start: 20040902
  3. METHOTREXATE [Suspect]
     Indication: RHEUMATOID ARTHRITIS
     Dosage: 20 MG, QW
     Route: 048
     Dates: start: 19990101
  4. PREDNISONE [Suspect]
     Indication: RHEUMATOID ARTHRITIS
     Dosage: 5 MG, BID
     Dates: start: 20041102
  5. AMIODARONE HCL [Concomitant]
     Indication: PERICARDITIS
     Dosage: 200 MG, QD
     Route: 048
     Dates: start: 20041102
  6. CALTRATE +D [Concomitant]
     Indication: OSTEOPOROTIC FRACTURE
  7. OMEPRAZOLE [Concomitant]
  8. TRAMADOL HCL [Concomitant]
  9. NYSTATIN [Concomitant]
  10. ACETAMINOPHEN W/ CODEINE [Concomitant]
  11. DIAFORMIN [Concomitant]
  12. ACETAMINOPHEN [Concomitant]
  13. AMLODIPINE [Concomitant]
  14. RABEPRAZOLE SODIUM [Concomitant]
  15. MEGAFOL [Concomitant]
  16. AMLODIPINE BESYLATE [Concomitant]
  17. ACTRAPID [Concomitant]
  18. CIPROFLOXACIN [Concomitant]

REACTIONS (5)
  - ARTHRITIS BACTERIAL [None]
  - CENTRAL VENOUS CATHETERISATION [None]
  - CONCOMITANT DISEASE PROGRESSION [None]
  - OSTEOMYELITIS [None]
  - RHEUMATOID ARTHRITIS [None]
